FAERS Safety Report 6029501-X (Version None)
Quarter: 2009Q1

REPORT INFORMATION
  Report Type: 
  Country: None (occurrence: None)
  Receive Date: 20090106
  Receipt Date: 20081229
  Transmission Date: 20090719
  Serious: Yes (Other)
  Sender: FDA-Public Use
  Company Number: AR-ABBOTT-08P-007-0490001-00

PATIENT
  Sex: Male
  Weight: 85 kg

DRUGS (4)
  1. VALCOTE TABLETS [Suspect]
     Indication: BORDERLINE PERSONALITY DISORDER
     Route: 048
     Dates: start: 20000101
  2. CLOZAPINE [Suspect]
     Indication: BORDERLINE PERSONALITY DISORDER
     Route: 048
     Dates: start: 20000101, end: 20080101
  3. CLONAZEPAM [Concomitant]
     Indication: INSOMNIA
     Route: 048
     Dates: start: 20080101
  4. RISPERIDONE [Concomitant]
     Indication: BORDERLINE PERSONALITY DISORDER
     Route: 048
     Dates: start: 20080101

REACTIONS (7)
  - FATIGUE [None]
  - IMMUNOSUPPRESSION [None]
  - ORGAN FAILURE [None]
  - PYREXIA [None]
  - SALIVARY HYPERSECRETION [None]
  - TESTIS CANCER [None]
  - WEIGHT DECREASED [None]
